FAERS Safety Report 11626848 (Version 1)
Quarter: 2015Q4

REPORT INFORMATION
  Report Type: Report from Study
  Country: US (occurrence: US)
  Receive Date: 20151013
  Receipt Date: 20151013
  Transmission Date: 20160304
  Serious: Yes (Other)
  Sender: FDA-Public Use
  Company Number: US-ABBVIE-15P-163-1477363-00

PATIENT
  Sex: Female

DRUGS (2)
  1. CREON [Suspect]
     Active Substance: PANCRELIPASE AMYLASE\PANCRELIPASE LIPASE\PANCRELIPASE PROTEASE
     Indication: PANCREATITIS ACUTE
     Dosage: 24000 BTU TWO CAPSULES WITH EACH MEAL
     Route: 065
     Dates: start: 20140901
  2. DILAUDID [Concomitant]
     Active Substance: HYDROMORPHONE HYDROCHLORIDE
     Indication: PAIN
     Route: 065

REACTIONS (3)
  - Stent removal [Recovering/Resolving]
  - Endoscopic retrograde cholangiopancreatography [Recovering/Resolving]
  - Stent placement [Recovering/Resolving]
